FAERS Safety Report 26087587 (Version 1)
Quarter: 2025Q4

REPORT INFORMATION
  Report Type: Spontaneous
  Country: US (occurrence: US)
  Receive Date: 20251125
  Receipt Date: 20251125
  Transmission Date: 20260118
  Serious: No
  Sender: VERTEX
  Company Number: US-VERTEX PHARMACEUTICALS-2025-019672

PATIENT
  Age: 33 Year

DRUGS (2)
  1. TRIKAFTA [Suspect]
     Active Substance: ELEXACAFTOR\IVACAFTOR\TEZACAFTOR
     Indication: Cystic fibrosis
     Dosage: UNK
  2. OZEMPIC [Suspect]
     Active Substance: SEMAGLUTIDE
     Indication: Cystic fibrosis related diabetes
     Dosage: 0.25 MG EVERT 2-3 WEEKS
     Route: 065

REACTIONS (5)
  - Obstructive airways disorder [Unknown]
  - Constipation [Unknown]
  - Overweight [Recovering/Resolving]
  - Cystic fibrosis related diabetes [Unknown]
  - Blood glucose decreased [Recovering/Resolving]
